FAERS Safety Report 4396878-0 (Version None)
Quarter: 2004Q3

REPORT INFORMATION
  Report Type: 
  Country: None (occurrence: None)
  Receive Date: 20040713
  Receipt Date: 20040713
  Transmission Date: 20050211
  Serious: Yes (Life-Threatening)
  Sender: FDA-Public Use
  Company Number: None

PATIENT
  Sex: Male

DRUGS (3)
  1. CISPLATIN [Suspect]
     Dosage: 3.5 MG KG X 1
     Dates: start: 20040608
  2. CYCLOPHOSPHAMIDE [Suspect]
     Dosage: 65 MG/KG X 1
     Dates: start: 20040609
  3. VP-16 [Suspect]
     Dosage: 1.7 MG/KG DAILY
     Dates: start: 20040609, end: 20040619

REACTIONS (6)
  - ABDOMINAL PAIN [None]
  - CAECITIS [None]
  - HYPOTENSION [None]
  - METABOLIC ACIDOSIS [None]
  - NEUTROPENIA [None]
  - PYREXIA [None]
